FAERS Safety Report 24733632 (Version 2)
Quarter: 2024Q4

REPORT INFORMATION
  Report Type: Spontaneous
  Country: US (occurrence: US)
  Receive Date: 20241213
  Receipt Date: 20241213
  Transmission Date: 20250115
  Serious: No
  Sender: NOVO NORDISK
  Company Number: US-NOVOPROD-1245462

PATIENT
  Age: 54 Year
  Sex: Female

DRUGS (2)
  1. LEVEMIR [Suspect]
     Active Substance: INSULIN DETEMIR
     Indication: Type 2 diabetes mellitus
     Dosage: 80 IU, QD
     Route: 058
     Dates: end: 20240603
  2. LEVEMIR [Suspect]
     Active Substance: INSULIN DETEMIR
     Indication: Type 2 diabetes mellitus
     Dosage: 22 UNITS IN THE MORNING, 60 UNITS AT NIGHT
     Route: 058
     Dates: start: 2014

REACTIONS (8)
  - Dizziness [Recovered/Resolved]
  - Feeling cold [Recovered/Resolved]
  - Syncope [Recovered/Resolved]
  - Decreased appetite [Not Recovered/Not Resolved]
  - Blood glucose increased [Recovered/Resolved]
  - Blood glucose decreased [Not Recovered/Not Resolved]
  - Blood glucose increased [Not Recovered/Not Resolved]
  - Product quality issue [Unknown]

NARRATIVE: CASE EVENT DATE: 20240603
